FAERS Safety Report 7015139-4 (Version None)
Quarter: 2010Q3

REPORT INFORMATION
  Report Type: 
  Country: None (occurrence: None)
  Receive Date: 20100927
  Receipt Date: 20100118
  Transmission Date: 20110219
  Serious: No
  Sender: FDA-Public Use
  Company Number: US-ASTRAZENECA-2010SE02236

PATIENT
  Age: 79 Year
  Sex: Female

DRUGS (1)
  1. ARIMIDEX [Suspect]
     Indication: BREAST CANCER
     Route: 048
     Dates: start: 20030101

REACTIONS (7)
  - ACNE [None]
  - ALOPECIA [None]
  - BONE PAIN [None]
  - HAIR GROWTH ABNORMAL [None]
  - HYPERSENSITIVITY [None]
  - OSTEOARTHRITIS [None]
  - OSTEOPOROSIS [None]
